FAERS Safety Report 15781168 (Version 2)
Quarter: 2019Q2

REPORT INFORMATION
  Report Type: Report from Study
  Country: US (occurrence: US)
  Receive Date: 20190102
  Receipt Date: 20190510
  Transmission Date: 20190711
  Serious: Yes (Hospitalization)
  Sender: FDA-Public Use
  Company Number: US-SA-2018SA394864

PATIENT
  Age: 72 Year
  Sex: Male

DRUGS (1)
  1. INSULIN GLARGINE [Suspect]
     Active Substance: INSULIN GLARGINE
     Dosage: 52 U, QD
     Route: 058

REACTIONS (3)
  - Coronary artery bypass [Unknown]
  - Blood glucose decreased [Recovered/Resolved]
  - Catheterisation cardiac [Unknown]
